FAERS Safety Report 7630177-6 (Version None)
Quarter: 2011Q3

REPORT INFORMATION
  Report Type: 
  Country: None (occurrence: None)
  Receive Date: 20110722
  Receipt Date: 20110708
  Transmission Date: 20111222
  Serious: Yes (Hospitalization, Other)
  Sender: FDA-Public Use
  Company Number: PHHY2010JP81860

PATIENT
  Sex: Female
  Weight: 46 kg

DRUGS (9)
  1. AMARYL [Concomitant]
     Dosage: 3 MG, UNK
     Route: 048
     Dates: start: 20080728
  2. ENALAPRIL MALEATE [Concomitant]
     Dosage: 5 MG, UNK
     Route: 048
     Dates: start: 20080728, end: 20081007
  3. NORVASC [Concomitant]
     Dosage: 5 MG, UNK
     Route: 048
     Dates: start: 20080728, end: 20090715
  4. AMARYL [Concomitant]
     Dosage: 2 MG, UNK
     Route: 048
     Dates: end: 20090715
  5. DIOVAN [Suspect]
     Dosage: 20 MG, QD
     Route: 048
     Dates: start: 20081008, end: 20090715
  6. METFORMIN HCL [Concomitant]
     Dosage: 250 MG, UNK
     Route: 048
     Dates: start: 20080728, end: 20090715
  7. CRESTOR [Concomitant]
     Dosage: 2.5 MG, UNK
     Route: 048
     Dates: start: 20080728, end: 20090715
  8. DIOVAN [Suspect]
     Indication: HYPERTENSION
     Dosage: 40 MG, QD
     Route: 048
     Dates: start: 20080728, end: 20081007
  9. ACTOS [Concomitant]
     Dosage: 30 MG, UNK
     Route: 048
     Dates: start: 20081022, end: 20090715

REACTIONS (3)
  - DECREASED APPETITE [None]
  - APHAGIA [None]
  - BLOOD PRESSURE DIASTOLIC DECREASED [None]
